FAERS Safety Report 21081241 (Version 1)
Quarter: 2022Q3

REPORT INFORMATION
  Report Type: Spontaneous
  Country: US (occurrence: None)
  Receive Date: 20220713
  Receipt Date: 20220713
  Transmission Date: 20221027
  Serious: Yes (Other)
  Sender: FDA-Public Use
  Company Number: None

PATIENT
  Age: 73 Year
  Sex: Female

DRUGS (5)
  1. PAXLOVID [Suspect]
     Active Substance: NIRMATRELVIR\RITONAVIR
     Indication: COVID-19
     Dosage: FREQUENCY : TWICE A DAY;?
     Route: 048
     Dates: start: 20220709
  2. ATORVASTATIN [Concomitant]
     Active Substance: ATORVASTATIN
     Dates: end: 20220705
  3. CLorthalidone [Concomitant]
     Dates: start: 20220301
  4. LOSARTAN [Concomitant]
     Active Substance: LOSARTAN
     Dates: start: 20220301
  5. MECLIZINE [Concomitant]
     Active Substance: MECLIZINE HYDROCHLORIDE
     Dates: start: 20190101

REACTIONS (1)
  - Vomiting [None]

NARRATIVE: CASE EVENT DATE: 20220713
